FAERS Safety Report 9350840 (Version 1)
Quarter: 2013Q2

REPORT INFORMATION
  Report Type: Spontaneous
  Country: US (occurrence: US)
  Receive Date: 20130617
  Receipt Date: 20130617
  Transmission Date: 20140414
  Serious: No
  Sender: FDA-Public Use
  Company Number: US-BAYER-2013-073804

PATIENT
  Age: 64 Year
  Sex: Female
  Weight: 61.68 kg

DRUGS (1)
  1. ALEVE TABLET [Suspect]
     Indication: BACK PAIN
     Dosage: 2 DF, BID
     Route: 048
     Dates: start: 20130605, end: 20130607

REACTIONS (2)
  - Drug ineffective [None]
  - Incorrect dose administered [None]
